FAERS Safety Report 8389735-6 (Version None)
Quarter: 2012Q2

REPORT INFORMATION
  Report Type: 
  Country: None (occurrence: None)
  Receive Date: 20120524
  Receipt Date: 20120524
  Transmission Date: 20120825
  Serious: No
  Sender: FDA-Public Use
  Company Number: None

PATIENT
  Sex: Female

DRUGS (2)
  1. ENBREL [Suspect]
     Indication: RHEUMATOID ARTHRITIS
     Dosage: 50MG QWK SQ
     Route: 058
     Dates: start: 20110427
  2. ENBREL [Suspect]
     Indication: PSORIASIS
     Dosage: 50MG QWK SQ
     Route: 058
     Dates: start: 20110427

REACTIONS (2)
  - DRY SKIN [None]
  - RHEUMATOID ARTHRITIS [None]
